FAERS Safety Report 6540447-0 (Version None)
Quarter: 2010Q1

REPORT INFORMATION
  Report Type: 
  Country: None (occurrence: None)
  Receive Date: 20100113
  Receipt Date: 20100104
  Transmission Date: 20100710
  Serious: Yes (Death, Hospitalization)
  Sender: FDA-Public Use
  Company Number: 2009SP041176

PATIENT
  Age: 47 Year
  Sex: Female
  Weight: 54 kg

DRUGS (23)
  1. DEXAMETHASONE [Suspect]
     Indication: PROPHYLAXIS OF NAUSEA AND VOMITING
     Dosage: 0.5 MG;QD;PO
     Route: 048
     Dates: start: 20091020, end: 20091026
  2. DEXAMETHASONE [Suspect]
     Indication: PROPHYLAXIS OF NAUSEA AND VOMITING
     Dosage: 0.5 MG;QD;PO
     Route: 048
     Dates: start: 20091118
  3. CISPLATIN [Suspect]
     Indication: NON-SMALL CELL LUNG CANCER
     Dosage: 116 MG;Q3W;IV
     Route: 042
     Dates: start: 20091006, end: 20091006
  4. ALIMTA [Suspect]
     Indication: NON-SMALL CELL LUNG CANCER
     Dosage: 775 MG;Q3W;IV
     Route: 042
     Dates: start: 20091006, end: 20091006
  5. HYDROMORPHONE [Concomitant]
  6. OMEPRAZOLE [Concomitant]
  7. LEVOPROMAZIN [Concomitant]
  8. METOCLOPRAMIDE [Concomitant]
  9. DULCOLAX [Concomitant]
  10. CO-DANTHRAMER [Concomitant]
  11. IBUPROFEN [Concomitant]
  12. NOZINAN [Concomitant]
  13. MIRTAZAPINE [Concomitant]
  14. MOVICOL [Concomitant]
  15. PARACETAMOL [Concomitant]
  16. SENNA [Concomitant]
  17. FOLIC ACID [Concomitant]
  18. TRANEXAMIC ACID [Concomitant]
  19. ORAMORPH SR [Concomitant]
  20. NYSTATIN [Concomitant]
  21. ONDANSETRON [Concomitant]
  22. CODEINE [Concomitant]
  23. DOMPERIDONE [Concomitant]

REACTIONS (8)
  - DYSPHAGIA [None]
  - MALIGNANT NEOPLASM PROGRESSION [None]
  - METASTASES TO LYMPH NODES [None]
  - NECROSIS [None]
  - NON-SMALL CELL LUNG CANCER [None]
  - ORAL CANDIDIASIS [None]
  - OROPHARYNGEAL PAIN [None]
  - TONSILLAR HYPERTROPHY [None]
